FAERS Safety Report 9120948 (Version 1)
Quarter: 2013Q1

REPORT INFORMATION
  Report Type: Spontaneous
  Country: FR (occurrence: FR)
  Receive Date: 20130226
  Receipt Date: 20130226
  Transmission Date: 20140127
  Serious: Yes (Other)
  Sender: FDA-Public Use
  Company Number: FR-ROCHE-1184493

PATIENT
  Age: 38 Year
  Sex: Female
  Weight: 85 kg

DRUGS (2)
  1. ZELBORAF [Suspect]
     Indication: MALIGNANT MELANOMA
     Route: 048
     Dates: start: 20120914
  2. ZELBORAF [Suspect]
     Indication: METASTASES TO CENTRAL NERVOUS SYSTEM
     Dosage: 3 TABLETS TWICE DAILY
     Route: 048
     Dates: end: 20130208

REACTIONS (1)
  - Purpura [Recovering/Resolving]
